FAERS Safety Report 8988495 (Version 1)
Quarter: 2012Q4

REPORT INFORMATION
  Report Type: Spontaneous
  Country: US (occurrence: None)
  Receive Date: 20121224
  Receipt Date: 20121224
  Transmission Date: 20130627
  Serious: Yes (Other)
  Sender: FDA-Public Use
  Company Number: None

PATIENT
  Age: 14 Year
  Sex: Male
  Weight: 53.52 kg

DRUGS (1)
  1. TAMIFLU 75MG GENENTECH [Suspect]
     Indication: FLU
     Dosage: 1 Capsule 2x a day po
     Route: 048
     Dates: start: 20121219, end: 20121219

REACTIONS (2)
  - Epistaxis [None]
  - Diarrhoea [None]
